FAERS Safety Report 18131575 (Version 1)
Quarter: 2020Q3

REPORT INFORMATION
  Report Type: Spontaneous
  Country: US (occurrence: US)
  Receive Date: 20200810
  Receipt Date: 20200810
  Transmission Date: 20201103
  Serious: No
  Sender: FDA-Public Use
  Company Number: US-ELI_LILLY_AND_COMPANY-US202008001490

PATIENT
  Sex: Female

DRUGS (5)
  1. HUMIRA [Concomitant]
     Active Substance: ADALIMUMAB
     Indication: PRODUCT USED FOR UNKNOWN INDICATION
  2. TALTZ [Suspect]
     Active Substance: IXEKIZUMAB
     Indication: PSORIATIC ARTHROPATHY
     Dosage: 160 MG, OTHER LOADING DOSE
     Route: 058
     Dates: start: 20200620
  3. TALTZ [Suspect]
     Active Substance: IXEKIZUMAB
     Dosage: 80 MG, OTHER MAINTANENCE DOSE
     Route: 058
     Dates: start: 20200704
  4. ENBREL [Concomitant]
     Active Substance: ETANERCEPT
     Indication: PRODUCT USED FOR UNKNOWN INDICATION
  5. STELARA [Concomitant]
     Active Substance: USTEKINUMAB
     Indication: PRODUCT USED FOR UNKNOWN INDICATION

REACTIONS (12)
  - Visual impairment [Unknown]
  - Injection site swelling [Unknown]
  - Injection site erythema [Unknown]
  - Pain in extremity [Unknown]
  - Nausea [Unknown]
  - Gait disturbance [Unknown]
  - Feeding disorder [Unknown]
  - SARS-CoV-2 test negative [Unknown]
  - Chills [Unknown]
  - Arthralgia [Unknown]
  - Hyperhidrosis [Unknown]
  - Eye swelling [Unknown]

NARRATIVE: CASE EVENT DATE: 20200704
